FAERS Safety Report 18072379 (Version 1)
Quarter: 2020Q3

REPORT INFORMATION
  Report Type: Spontaneous
  Country: FR (occurrence: FR)
  Receive Date: 20200727
  Receipt Date: 20200727
  Transmission Date: 20201103
  Serious: Yes (Hospitalization)
  Sender: FDA-Public Use
  Company Number: FR-TEVA-2020-FR-1805057

PATIENT
  Age: 76 Year
  Sex: Female
  Weight: 74 kg

DRUGS (2)
  1. FURADANTINE 50 MG, GELULE [Suspect]
     Active Substance: NITROFURANTOIN
     Indication: URINARY TRACT INFECTION
     Dosage: 200 MG
     Route: 048
     Dates: start: 20191031, end: 20191106
  2. MONURIL ADULTES 3 G, GRANULES POUR SOLUTION BUVABLE EN SACHET [Concomitant]
     Indication: URINARY TRACT INFECTION
     Dosage: UNIT DOSE: 3 GRAM, FORM OF ADMIN. TEXT :  GRANULES FOR ORAL SOLUTION IN SACHET
     Route: 048
     Dates: start: 20191027, end: 20191027

REACTIONS (2)
  - Hepatitis cholestatic [Recovered/Resolved]
  - Hepatitis [Recovered/Resolved]

NARRATIVE: CASE EVENT DATE: 20191106
